FAERS Safety Report 10050267 (Version 1)
Quarter: 2014Q2

REPORT INFORMATION
  Report Type: Spontaneous
  Country: FR (occurrence: FR)
  Receive Date: 20140401
  Receipt Date: 20140401
  Transmission Date: 20141212
  Serious: Yes (Hospitalization)
  Sender: FDA-Public Use
  Company Number: FR-JNJFOC-20140316124

PATIENT
  Age: 26 Year
  Sex: Male

DRUGS (11)
  1. REMICADE [Suspect]
     Indication: CROHN^S DISEASE
     Dosage: 10TH INFUSION
     Route: 042
     Dates: start: 20130830
  2. REMICADE [Suspect]
     Indication: CROHN^S DISEASE
     Route: 042
     Dates: start: 20130913
  3. REMICADE [Suspect]
     Indication: CROHN^S DISEASE
     Route: 042
     Dates: start: 20131105
  4. REMICADE [Suspect]
     Indication: CROHN^S DISEASE
     Route: 042
     Dates: start: 20140208
  5. REMICADE [Suspect]
     Indication: CROHN^S DISEASE
     Route: 042
     Dates: start: 20120608
  6. SOLUPRED [Concomitant]
     Indication: PREMEDICATION
     Route: 065
     Dates: start: 20130913
  7. SOLUPRED [Concomitant]
     Indication: PREMEDICATION
     Route: 065
     Dates: start: 20131102, end: 20131107
  8. SOLUPRED [Concomitant]
     Indication: PREMEDICATION
     Route: 065
     Dates: start: 20140205, end: 20140210
  9. ATARAX [Concomitant]
     Indication: PREMEDICATION
     Route: 065
     Dates: start: 20130913
  10. ATARAX [Concomitant]
     Indication: PREMEDICATION
     Route: 065
     Dates: start: 20131102, end: 20131107
  11. ATARAX [Concomitant]
     Indication: PREMEDICATION
     Route: 065
     Dates: start: 20140205, end: 20140210

REACTIONS (4)
  - Infusion related reaction [Recovered/Resolved]
  - Skin reaction [Recovered/Resolved]
  - Erythema [Recovered/Resolved]
  - Laryngeal oedema [Recovered/Resolved]
